FAERS Safety Report 18284659 (Version 2)
Quarter: 2020Q3

REPORT INFORMATION
  Report Type: Spontaneous
  Country: US (occurrence: US)
  Receive Date: 20200918
  Receipt Date: 20200925
  Transmission Date: 20201103
  Serious: No
  Sender: FDA-Public Use
  Company Number: US-PFIZER INC-2020354517

PATIENT
  Age: 37 Year
  Sex: Male

DRUGS (2)
  1. FLUCONAZOLE. [Suspect]
     Active Substance: FLUCONAZOLE
     Dosage: 800 MG, DAILY (400MG ? 2 PILLS PER DAY)
  2. DIFLUCAN [Suspect]
     Active Substance: FLUCONAZOLE
     Dosage: 300 MG, DAILY (150MG ? 2 TABLETS PER DAY)

REACTIONS (3)
  - Ocular icterus [Unknown]
  - Urticaria [Unknown]
  - Visual impairment [Unknown]
